FAERS Safety Report 23288832 (Version 1)
Quarter: 2023Q4

REPORT INFORMATION
  Report Type: Spontaneous
  Country: US (occurrence: US)
  Receive Date: 20231212
  Receipt Date: 20231212
  Transmission Date: 20240109
  Serious: No
  Sender: FDA-Public Use
  Company Number: US-SA-SAC20231207001219

PATIENT
  Age: 54 Year
  Sex: Female

DRUGS (6)
  1. DUPIXENT [Suspect]
     Active Substance: DUPILUMAB
     Indication: Dermatitis atopic
     Dosage: 300 MG, QOW
     Route: 058
     Dates: start: 20231023
  2. ORENCIA [Concomitant]
     Active Substance: ABATACEPT
  3. SINGULAIR [Concomitant]
     Active Substance: MONTELUKAST SODIUM
  4. CLOBETASOL [Concomitant]
     Active Substance: CLOBETASOL
  5. GABAPENTIN [Concomitant]
     Active Substance: GABAPENTIN
  6. OXYCODONE [Concomitant]
     Active Substance: OXYCODONE

REACTIONS (2)
  - Nausea [Unknown]
  - Headache [Unknown]

NARRATIVE: CASE EVENT DATE: 20230101
